FAERS Safety Report 16005632 (Version 1)
Quarter: 2019Q1

REPORT INFORMATION
  Report Type: Report from Study
  Country: US (occurrence: US)
  Receive Date: 20190226
  Receipt Date: 20190226
  Transmission Date: 20190418
  Serious: Yes (Hospitalization, Other)
  Sender: FDA-Public Use
  Company Number: US-SA-2019SA050313

PATIENT
  Age: 87 Year
  Sex: Male

DRUGS (1)
  1. DRONEDARONE [Suspect]
     Active Substance: DRONEDARONE
     Indication: ATRIAL FIBRILLATION
     Dosage: 400 MG, BID
     Route: 048

REACTIONS (4)
  - Lymphoedema [Not Recovered/Not Resolved]
  - General physical condition decreased [Unknown]
  - Shoulder operation [Unknown]
  - Neuroendocrine carcinoma of the skin [Recovered/Resolved]

NARRATIVE: CASE EVENT DATE: 20180827
